FAERS Safety Report 18333947 (Version 2)
Quarter: 2020Q4

REPORT INFORMATION
  Report Type: Report from Study
  Country: IT (occurrence: IT)
  Receive Date: 20201001
  Receipt Date: 20201214
  Transmission Date: 20210113
  Serious: Yes (Other)
  Sender: FDA-Public Use
  Company Number: IT-ACCORD-203160

PATIENT
  Age: 75 Year
  Sex: Male

DRUGS (10)
  1. RAMIPRIL. [Concomitant]
     Active Substance: RAMIPRIL
  2. DABIGATRAN [Interacting]
     Active Substance: DABIGATRAN
     Indication: THROMBOSIS PROPHYLAXIS
     Route: 048
     Dates: start: 20190813, end: 20200813
  3. OXATOMIDE [Concomitant]
     Active Substance: OXATOMIDE
  4. NOVORAPID [Concomitant]
     Active Substance: INSULIN ASPART
  5. METFORMIN [Concomitant]
     Active Substance: METFORMIN HYDROCHLORIDE
  6. SIMVASTATIN. [Concomitant]
     Active Substance: SIMVASTATIN
  7. RABEPRAZOLE [Concomitant]
     Active Substance: RABEPRAZOLE
  8. LANTUS [Concomitant]
     Active Substance: INSULIN GLARGINE
  9. CLOPIDOGREL [Suspect]
     Active Substance: CLOPIDOGREL BISULFATE
     Indication: THROMBOSIS PROPHYLAXIS
     Route: 048
     Dates: start: 20190813, end: 20200813
  10. PAROXETINE. [Concomitant]
     Active Substance: PAROXETINE

REACTIONS (2)
  - Drug interaction [Unknown]
  - Haematuria [Not Recovered/Not Resolved]

NARRATIVE: CASE EVENT DATE: 20200812
